FAERS Safety Report 11791364 (Version 5)
Quarter: 2016Q1

REPORT INFORMATION
  Report Type: Report from Study
  Country: FR (occurrence: FR)
  Receive Date: 20151201
  Receipt Date: 20160212
  Transmission Date: 20160525
  Serious: Yes (Hospitalization)
  Sender: FDA-Public Use
  Company Number: PHHO2015FR018694

PATIENT
  Age: 61 Year
  Sex: Female
  Weight: 42 kg

DRUGS (6)
  1. LDK378 [Suspect]
     Active Substance: CERITINIB
     Dosage: 450 MG, UNK
     Route: 048
     Dates: start: 20151120, end: 20151127
  2. LDK378 [Suspect]
     Active Substance: CERITINIB
     Dosage: 600 MG, UNK
     Route: 048
     Dates: start: 20150724, end: 20151024
  3. LDK378 [Suspect]
     Active Substance: CERITINIB
     Indication: NON-SMALL CELL LUNG CANCER
     Dosage: 750 MG, UNK
     Route: 048
     Dates: start: 20150507, end: 20150614
  4. LDK378 [Suspect]
     Active Substance: CERITINIB
     Dosage: NO TREATMENT
     Route: 048
     Dates: start: 20151025, end: 20151119
  5. XANAX [Concomitant]
     Active Substance: ALPRAZOLAM
     Indication: ANXIETY
     Dosage: UNK
     Route: 065
     Dates: start: 20150508
  6. LDK378 [Suspect]
     Active Substance: CERITINIB
     Dosage: NO TREATMENT
     Route: 048
     Dates: start: 20150615, end: 20150723

REACTIONS (4)
  - Pleural effusion [Recovering/Resolving]
  - Dysphagia [Recovered/Resolved]
  - Atrial fibrillation [Recovered/Resolved]
  - Respiratory distress [Recovered/Resolved]

NARRATIVE: CASE EVENT DATE: 20151027
